FAERS Safety Report 12029213 (Version 3)
Quarter: 2017Q2

REPORT INFORMATION
  Report Type: Report from Study
  Country: None (occurrence: US)
  Receive Date: 20160207
  Receipt Date: 20170420
  Transmission Date: 20170829
  Serious: Yes (Hospitalization)
  Sender: FDA-Public Use
  Company Number: US-ABBVIE-15K-163-1496012-00

PATIENT
  Sex: Female

DRUGS (2)
  1. HUMIRA [Suspect]
     Active Substance: ADALIMUMAB
     Indication: CROHN^S DISEASE
     Route: 058
     Dates: end: 2015
  2. HUMIRA [Suspect]
     Active Substance: ADALIMUMAB
     Route: 058
     Dates: start: 2015

REACTIONS (8)
  - Inappropriate schedule of drug administration [Unknown]
  - Crohn^s disease [Unknown]
  - White blood cell count increased [Recovered/Resolved]
  - Hip arthroplasty [Unknown]
  - Cough [Not Recovered/Not Resolved]
  - Intestinal obstruction [Unknown]
  - Colonoscopy [Unknown]
  - White blood cell count abnormal [Unknown]

NARRATIVE: CASE EVENT DATE: 2015
